FAERS Safety Report 5839665-6 (Version None)
Quarter: 2008Q3

REPORT INFORMATION
  Report Type: 
  Country: None (occurrence: None)
  Receive Date: 20080807
  Receipt Date: 20080729
  Transmission Date: 20090109
  Serious: Yes (Hospitalization)
  Sender: FDA-Public Use
  Company Number: 2008AL003110

PATIENT
  Age: 67 Year
  Sex: Female
  Weight: 72.5755 kg

DRUGS (6)
  1. DIGOXIN [Suspect]
     Indication: ARRHYTHMIA
     Dosage: 0.125MG DAILY PO
     Route: 048
     Dates: start: 20080227, end: 20080315
  2. GLUCOPHAGE [Concomitant]
  3. TEMOLOL [Concomitant]
  4. PREVACID [Concomitant]
  5. BYETTA [Concomitant]
  6. SYNTHROID [Concomitant]

REACTIONS (8)
  - DIZZINESS [None]
  - DYSSTASIA [None]
  - FALL [None]
  - FATIGUE [None]
  - INCOHERENT [None]
  - NAUSEA [None]
  - VERTIGO [None]
  - VOMITING [None]
